FAERS Safety Report 21921102 (Version 2)
Quarter: 2023Q1

REPORT INFORMATION
  Report Type: Spontaneous
  Country: US (occurrence: US)
  Receive Date: 20230127
  Receipt Date: 20230306
  Transmission Date: 20230418
  Serious: Yes (Hospitalization)
  Sender: FDA-Public Use
  Company Number: US-NOVOPROD-1017195

PATIENT
  Sex: Male
  Weight: 4.429 kg

DRUGS (15)
  1. JARDIANCE [Concomitant]
     Active Substance: EMPAGLIFLOZIN
     Indication: Type 2 diabetes mellitus
     Dosage: 25 MG, QD
     Route: 064
     Dates: start: 20210703, end: 20211012
  2. INSULIN GLARGINE [Concomitant]
     Active Substance: INSULIN GLARGINE
     Indication: Type 2 diabetes mellitus
     Dosage: 15 IU, QD
     Route: 064
     Dates: start: 20211018, end: 20211112
  3. LEVEMIR [Suspect]
     Active Substance: INSULIN DETEMIR
     Dosage: 30 IU, TID
     Route: 064
  4. LEVEMIR [Suspect]
     Active Substance: INSULIN DETEMIR
     Indication: Type 2 diabetes mellitus
     Dosage: 20 IU, QD
     Route: 064
     Dates: start: 20211112, end: 20211118
  5. LEVEMIR [Suspect]
     Active Substance: INSULIN DETEMIR
     Dosage: 40 UNK
     Route: 064
     Dates: start: 20211129, end: 20211207
  6. LEVEMIR [Suspect]
     Active Substance: INSULIN DETEMIR
     Dosage: 44 IU, QD
     Route: 064
     Dates: start: 20211207, end: 20220107
  7. LEVEMIR [Suspect]
     Active Substance: INSULIN DETEMIR
     Dosage: 56 UNK
     Route: 064
     Dates: start: 20220107
  8. LEVEMIR [Suspect]
     Active Substance: INSULIN DETEMIR
     Dosage: 34 IU, QD
     Route: 064
     Dates: start: 20211118, end: 20211129
  9. NOVOLOG [Suspect]
     Active Substance: INSULIN ASPART
     Indication: Type 2 diabetes mellitus
     Dosage: 3 IU, TID
     Route: 064
     Dates: start: 20211112, end: 20211116
  10. INSULIN LISPRO [Concomitant]
     Active Substance: INSULIN LISPRO
     Dosage: 5-7IU TID
     Route: 064
     Dates: start: 20211207
  11. INSULIN LISPRO [Concomitant]
     Active Substance: INSULIN LISPRO
     Indication: Type 2 diabetes mellitus
     Dosage: 3 IU, TID
     Route: 064
     Dates: start: 20211116, end: 20211129
  12. INSULIN LISPRO [Concomitant]
     Active Substance: INSULIN LISPRO
     Dosage: 5 IU, TID
     Route: 064
     Dates: start: 20211129, end: 20211207
  13. METFORMIN [Concomitant]
     Active Substance: METFORMIN HYDROCHLORIDE
     Indication: Type 2 diabetes mellitus
     Dosage: 500 MG, BID
     Route: 064
     Dates: start: 20211130, end: 20211220
  14. GLIMEPIRIDE [Concomitant]
     Active Substance: GLIMEPIRIDE
     Route: 064
  15. LEVOTHYROXINE [Concomitant]
     Active Substance: LEVOTHYROXINE
     Route: 064

REACTIONS (4)
  - Blood gases abnormal [Recovered/Resolved]
  - Blood glucose abnormal [Recovered/Resolved]
  - Poor sucking reflex [Recovered/Resolved]
  - Foetal exposure during pregnancy [Recovered/Resolved]

NARRATIVE: CASE EVENT DATE: 20210824
